FAERS Safety Report 9882382 (Version 4)
Quarter: 2014Q2

REPORT INFORMATION
  Report Type: Spontaneous
  Country: US (occurrence: US)
  Receive Date: 20140207
  Receipt Date: 20140526
  Transmission Date: 20141212
  Serious: Yes (Other)
  Sender: FDA-Public Use
  Company Number: PHEH2014US002470

PATIENT
  Sex: Female

DRUGS (15)
  1. HYDROCHLOROTHIAZIDE,VALSARTAN [Suspect]
     Indication: HYPERTENSION
     Dosage: UNK UKN, UNK
  2. DIOVAN [Suspect]
     Indication: HYPERTENSION
     Dosage: 160 MG, BID
  3. HYDRALAZINE [Suspect]
     Indication: HYPERTENSION
     Dosage: UNK UKN, UNK
  4. LOSARTAN [Suspect]
     Indication: HYPERTENSION
     Dosage: 100 MG, UNK
  5. HYZAAR [Suspect]
     Indication: HYPERTENSION
     Dosage: UNK UKN, UNK
  6. LOTRIL//ENALAPRIL MALEATE [Suspect]
     Indication: HYPERTENSION
     Dosage: UNK UKN, UNK
  7. NORVASC [Suspect]
     Indication: HYPERTENSION
     Dosage: UNK UKN, UNK
  8. CARDURA [Suspect]
     Indication: HYPERTENSION
     Dosage: UNK UKN, UNK
  9. HYTRIN [Suspect]
     Indication: HYPERTENSION
     Dosage: UNK UKN, UNK
  10. SULAR [Suspect]
     Indication: HYPERTENSION
     Dosage: UNK UKN, UNK
  11. CALAN [Suspect]
     Indication: HYPERTENSION
     Dosage: UNK UKN, UNK
  12. COZAAR [Suspect]
     Indication: HYPERTENSION
     Dosage: UNK UKN, UNK
  13. BYSTOLIC [Suspect]
     Indication: HYPERTENSION
     Dosage: UNK UKN, UNK
  14. LASIX [Concomitant]
     Dosage: UNK UKN, UNK
  15. VERAPAMIL [Concomitant]
     Dosage: UNK UKN, UNK

REACTIONS (6)
  - Chronic obstructive pulmonary disease [Unknown]
  - Respiratory disorder [Unknown]
  - Lung disorder [Unknown]
  - Nephropathy [Unknown]
  - Blood pressure increased [Unknown]
  - Drug ineffective [Unknown]
